FAERS Safety Report 7311683-0 (Version None)
Quarter: 2011Q1

REPORT INFORMATION
  Report Type: 
  Country: None (occurrence: None)
  Receive Date: 20110224
  Receipt Date: 20110210
  Transmission Date: 20110831
  Serious: Yes (Hospitalization)
  Sender: FDA-Public Use
  Company Number: JP-CELGENEUS-087-21880-11010477

PATIENT
  Sex: Male
  Weight: 69.9 kg

DRUGS (24)
  1. REVLIMID [Suspect]
     Route: 048
     Dates: start: 20101118, end: 20101118
  2. BAKTAR [Concomitant]
     Indication: PROPHYLAXIS
     Route: 048
     Dates: start: 20101018, end: 20101130
  3. OXYCONTIN [Concomitant]
     Route: 048
     Dates: start: 20101118, end: 20101130
  4. REVLIMID [Suspect]
     Route: 048
     Dates: start: 20101111, end: 20101115
  5. TAMSULOSIN HCL [Concomitant]
     Indication: NEUROGENIC BLADDER
     Route: 048
     Dates: start: 20070501, end: 20101130
  6. STAYBLA [Concomitant]
     Indication: NEUROGENIC BLADDER
     Route: 048
     Dates: start: 20100309, end: 20101130
  7. NOVAMIN [Concomitant]
     Route: 048
     Dates: start: 20101118, end: 20101124
  8. VALTREX [Concomitant]
     Indication: PROPHYLAXIS
     Route: 048
     Dates: start: 20100214, end: 20101130
  9. LYRICA [Concomitant]
     Route: 048
     Dates: start: 20100909, end: 20101130
  10. REVLIMID [Suspect]
     Route: 048
     Dates: start: 20101116, end: 20101116
  11. REVLIMID [Suspect]
     Route: 048
     Dates: start: 20101230, end: 20110107
  12. REVLIMID [Suspect]
     Route: 048
     Dates: start: 20110108, end: 20110114
  13. LENADEX [Suspect]
     Route: 048
     Dates: start: 20101202, end: 20110113
  14. OXINORM [Concomitant]
     Route: 048
     Dates: start: 20101118, end: 20101118
  15. LENADEX [Suspect]
     Indication: MULTIPLE MYELOMA
     Route: 048
     Dates: start: 20101102, end: 20101102
  16. CELECOX [Concomitant]
     Route: 048
     Dates: start: 20100513, end: 20101130
  17. REVLIMID [Suspect]
     Indication: MULTIPLE MYELOMA
     Route: 048
     Dates: start: 20101102, end: 20101109
  18. LENADEX [Suspect]
     Route: 048
     Dates: start: 20101109, end: 20101109
  19. REVLIMID [Suspect]
     Route: 048
     Dates: start: 20101202, end: 20101209
  20. PARIET [Concomitant]
     Indication: PROPHYLAXIS
     Route: 048
     Dates: start: 20101014, end: 20101130
  21. REVLIMID [Suspect]
     Route: 048
     Dates: start: 20101211, end: 20101222
  22. REVLIMID [Suspect]
     Route: 048
     Dates: start: 20110115, end: 20110117
  23. LENADEX [Suspect]
     Route: 048
     Dates: start: 20101116, end: 20101127
  24. ASPIRIN [Concomitant]
     Indication: PROPHYLAXIS
     Route: 048
     Dates: start: 20100121, end: 20101130

REACTIONS (6)
  - HYPERCALCAEMIA [None]
  - RENAL FAILURE ACUTE [None]
  - RENAL DISORDER [None]
  - THROMBOCYTOPENIA [None]
  - HYPERURICAEMIA [None]
  - ANAEMIA [None]
